FAERS Safety Report 6480601-X (Version None)
Quarter: 2009Q4

REPORT INFORMATION
  Report Type: 
  Country: None (occurrence: None)
  Receive Date: 20091208
  Receipt Date: 20091026
  Transmission Date: 20100525
  Serious: Yes (Other)
  Sender: FDA-Public Use
  Company Number: BR-SANOFI-AVENTIS-A01200906904

PATIENT
  Age: 63 Year
  Sex: Female
  Weight: 77 kg

DRUGS (9)
  1. CLOPIDOGREL BISULFATE [Suspect]
     Indication: ANGIOPLASTY
     Dosage: UNIT DOSE: 75 MG
     Route: 048
     Dates: start: 20090320, end: 20090601
  2. CLOPIDOGREL BISULFATE [Suspect]
     Indication: ACUTE MYOCARDIAL INFARCTION
     Dosage: UNIT DOSE: 75 MG
     Route: 048
     Dates: start: 20090320, end: 20090601
  3. CLOPIDOGREL BISULFATE [Suspect]
     Dosage: UNIT DOSE: 75 MG
     Route: 048
     Dates: start: 20090619, end: 20090812
  4. CLOPIDOGREL BISULFATE [Suspect]
     Dosage: UNIT DOSE: 75 MG
     Route: 048
     Dates: start: 20090619, end: 20090812
  5. CLOPIDOGREL BISULFATE [Suspect]
     Dosage: UNIT DOSE: 75 MG
     Route: 048
     Dates: start: 20090801
  6. CLOPIDOGREL BISULFATE [Suspect]
     Dosage: UNIT DOSE: 75 MG
     Route: 048
     Dates: start: 20090801
  7. AMLODIPINE [Concomitant]
     Dosage: UNIT DOSE: 5 MG
     Route: 048
     Dates: start: 20050101
  8. GLIMEPIRIDE [Concomitant]
     Dosage: UNIT DOSE: 4 MG
     Route: 048
  9. LOSARTAN POTASSIUM [Concomitant]
     Dosage: UNIT DOSE: 25 MG
     Route: 048
     Dates: start: 20080101

REACTIONS (6)
  - CHEST PAIN [None]
  - DRUG INEFFECTIVE [None]
  - FACIAL PARESIS [None]
  - HEAD DISCOMFORT [None]
  - PARAESTHESIA [None]
  - PRODUCT COUNTERFEIT [None]
